FAERS Safety Report 6490275-X (Version None)
Quarter: 2009Q4

REPORT INFORMATION
  Report Type: 
  Country: None (occurrence: None)
  Receive Date: 20091211
  Receipt Date: 20091202
  Transmission Date: 20100525
  Serious: Yes (Other)
  Sender: FDA-Public Use
  Company Number: US-BAYER-200941704NA

PATIENT
  Sex: Female

DRUGS (2)
  1. MIRENA [Suspect]
     Indication: CONTRACEPTION
     Route: 015
     Dates: start: 20080601, end: 20081201
  2. MIRENA [Suspect]
     Route: 015
     Dates: start: 20081201, end: 20091201

REACTIONS (6)
  - ABDOMINAL PAIN [None]
  - DEVICE DISLOCATION [None]
  - DEVICE EXPULSION [None]
  - DYSPAREUNIA [None]
  - ENDOMETRIOSIS [None]
  - PROCEDURAL PAIN [None]
